FAERS Safety Report 13271998 (Version 1)
Quarter: 2017Q1

REPORT INFORMATION
  Report Type: Other
  Country: FR (occurrence: FR)
  Receive Date: 20170227
  Receipt Date: 20170227
  Transmission Date: 20170428
  Serious: Yes (Hospitalization)
  Sender: FDA-Public Use
  Company Number: FR-LUPIN PHARMACEUTICALS INC.-2017-00828

PATIENT
  Age: 82 Year
  Sex: Male

DRUGS (1)
  1. METFORMIN [Suspect]
     Active Substance: METFORMIN HYDROCHLORIDE
     Indication: DIABETES MELLITUS
     Route: 065

REACTIONS (2)
  - Drug prescribing error [Unknown]
  - Lactic acidosis [Recovering/Resolving]
